FAERS Safety Report 14660676 (Version 1)
Quarter: 2018Q1

REPORT INFORMATION
  Report Type: Spontaneous
  Country: JP (occurrence: JP)
  Receive Date: 20180320
  Receipt Date: 20180320
  Transmission Date: 20180509
  Serious: Yes (Hospitalization)
  Sender: FDA-Public Use
  Company Number: JP-GLAXOSMITHKLINE-JP2018JPN043731

PATIENT
  Age: 86 Year
  Sex: Female

DRUGS (9)
  1. BALANCE (JAPAN) [Concomitant]
     Dosage: UNK UNK, TID
  2. ALFACALCIDOL [Concomitant]
     Active Substance: ALFACALCIDOL
     Dosage: 1 DF, 1D
  3. FLUTIDE DISKUS [Suspect]
     Active Substance: FLUTICASONE PROPIONATE
     Dosage: UNK UNK, BID
     Route: 055
  4. CARBOCISTEINE [Concomitant]
     Active Substance: CARBOCYSTEINE
     Dosage: UNK UNK, TID
  5. TEPRENONE [Concomitant]
     Active Substance: TEPRENONE
     Dosage: UNK, TID
  6. CLARITHROMYCIN. [Concomitant]
     Active Substance: CLARITHROMYCIN
     Dosage: 1 DF, QD
  7. OLMETEC TABLETS [Concomitant]
     Dosage: 1 DF, QD
  8. ITOPRIDE HYDROCHLORIDE [Concomitant]
     Active Substance: ITOPRIDE HYDROCHLORIDE
     Dosage: UNK UNK, TID
  9. AMLODIPINE [Concomitant]
     Active Substance: AMLODIPINE BESYLATE
     Dosage: 1 DF, QD

REACTIONS (2)
  - Sputum retention [Unknown]
  - Fracture [Recovering/Resolving]
